FAERS Safety Report 9064953 (Version 1)
Quarter: 2013Q1

REPORT INFORMATION
  Report Type: Spontaneous
  Country: BR (occurrence: BR)
  Receive Date: 20130128
  Receipt Date: 20130128
  Transmission Date: 20140127
  Serious: Yes (Death, Hospitalization, Other)
  Sender: FDA-Public Use
  Company Number: PHHY2012BR056285

PATIENT
  Sex: Female

DRUGS (2)
  1. DIOVAN TRIPLE [Suspect]
     Indication: HYPERTENSION
     Dosage: 1 DF, (160 MG VALS,  5 MG AMLO AND 12.5 MG HCTZ ) QD
     Route: 048
     Dates: start: 2011
  2. INSULIN [Concomitant]
     Dosage: UNK UKN, UNK

REACTIONS (7)
  - Cardiac arrest [Fatal]
  - Musculoskeletal chest pain [Unknown]
  - Blood pressure increased [Recovered/Resolved]
  - Eating disorder [Unknown]
  - Speech disorder [Unknown]
  - Decreased appetite [Not Recovered/Not Resolved]
  - Asthenia [Unknown]
